FAERS Safety Report 8265243-8 (Version None)
Quarter: 2012Q2

REPORT INFORMATION
  Report Type: 
  Country: None (occurrence: None)
  Receive Date: 20120406
  Receipt Date: 20120327
  Transmission Date: 20120825
  Serious: Yes (Hospitalization)
  Sender: FDA-Public Use
  Company Number: FR-ELI_LILLY_AND_COMPANY-FR201112002558

PATIENT
  Age: 82 Year
  Sex: Female
  Weight: 63 kg

DRUGS (10)
  1. BISOPROLOL FUMARATE [Concomitant]
     Dosage: 2.5 MG, QD
  2. ACETAMINOPHEN AND CODEINE PHOSPHATE [Concomitant]
     Dosage: 3 DF, QD
  3. DIGOXIN [Concomitant]
     Dosage: 0.125 MG, QD
  4. FORTEO [Suspect]
     Indication: OSTEOPOROSIS
     Dosage: 20 UG, QD
     Route: 058
     Dates: start: 20110708, end: 20111128
  5. PRAZEPAM [Concomitant]
     Dosage: 10 MG, QD
  6. PAROXETINE HYDROCHLORIDE [Concomitant]
     Dosage: 0.5 DF, QD
  7. FORTEO [Suspect]
     Dosage: 20 UG, QD
     Route: 058
     Dates: start: 20111209
  8. MIANSERINE [Concomitant]
     Dosage: 1 DF, QD
  9. VITAMIN D [Concomitant]
     Dosage: 1 DF, OTHER
  10. PREVISCAN [Concomitant]

REACTIONS (1)
  - OSTEOARTHRITIS [None]
